FAERS Safety Report 23555934 (Version 2)
Quarter: 2024Q2

REPORT INFORMATION
  Report Type: Spontaneous
  Country: CN (occurrence: CN)
  Receive Date: 20240222
  Receipt Date: 20240412
  Transmission Date: 20240715
  Serious: Yes (Hospitalization, Other)
  Sender: FDA-Public Use
  Company Number: CN-009507513-2402CHN007258

PATIENT
  Age: 74 Year
  Sex: Male
  Weight: 72 kg

DRUGS (32)
  1. PEMBROLIZUMAB [Suspect]
     Active Substance: PEMBROLIZUMAB
     Indication: Non-small cell lung cancer
     Dosage: 200 MG, ST, CYCLE 1 DAY 1
     Route: 041
     Dates: start: 20230106, end: 20230106
  2. PEMBROLIZUMAB [Suspect]
     Active Substance: PEMBROLIZUMAB
     Dosage: 200 MG, ST, CYCLE 2 DAY 1
     Route: 041
     Dates: start: 20230131, end: 20230131
  3. PEMBROLIZUMAB [Suspect]
     Active Substance: PEMBROLIZUMAB
     Dosage: 200 MG, ST, CYCLE 3 DAY 1
     Route: 041
     Dates: start: 20230221, end: 20230221
  4. PEMBROLIZUMAB [Suspect]
     Active Substance: PEMBROLIZUMAB
     Dosage: 200 MG, ST, CYCLE 4 DAY 1
     Route: 041
     Dates: start: 20230316, end: 20230316
  5. PEMBROLIZUMAB [Suspect]
     Active Substance: PEMBROLIZUMAB
     Dosage: 200 MG, ST, CYCLE 5 DAY 1
     Route: 041
     Dates: start: 20230407, end: 20230407
  6. PEMBROLIZUMAB [Suspect]
     Active Substance: PEMBROLIZUMAB
     Dosage: 200 MG, ST, CYCLE 6 DAY 1
     Route: 041
     Dates: start: 20230426, end: 20230426
  7. PEMBROLIZUMAB [Suspect]
     Active Substance: PEMBROLIZUMAB
     Dosage: 200 MG, ST, CYCLE 7 DAY 1
     Route: 041
     Dates: start: 20230518, end: 20230518
  8. PEMBROLIZUMAB [Suspect]
     Active Substance: PEMBROLIZUMAB
     Dosage: 200 MG, ST, CYCLE 8 DAY 1
     Route: 041
     Dates: start: 20230609, end: 20230609
  9. PEMBROLIZUMAB [Suspect]
     Active Substance: PEMBROLIZUMAB
     Dosage: 200 MG, ST, CYCLE 9 DAY 1
     Route: 041
     Dates: start: 20230630, end: 20230630
  10. PEMBROLIZUMAB [Suspect]
     Active Substance: PEMBROLIZUMAB
     Dosage: 200 MG, ST, CYCLE 10 DAY 1
     Route: 041
     Dates: start: 20230721, end: 20230721
  11. PEMBROLIZUMAB [Suspect]
     Active Substance: PEMBROLIZUMAB
     Dosage: 200 MG, ST, CYCLE 11 DAY 1
     Route: 041
     Dates: start: 20230811, end: 20230811
  12. PEMBROLIZUMAB [Suspect]
     Active Substance: PEMBROLIZUMAB
     Dosage: 200 MG, ST, CYCLE 12 DAY 1
     Route: 041
     Dates: start: 20230901, end: 20230901
  13. PEMBROLIZUMAB [Suspect]
     Active Substance: PEMBROLIZUMAB
     Dosage: 200 MG, ST, CYCLE 13 DAY 1
     Route: 041
     Dates: start: 20230922, end: 20230922
  14. PEMBROLIZUMAB [Suspect]
     Active Substance: PEMBROLIZUMAB
     Dosage: 200 MG, ST, CYCLE 14 DAY 1
     Route: 041
     Dates: start: 20231013, end: 20231013
  15. PEMBROLIZUMAB [Suspect]
     Active Substance: PEMBROLIZUMAB
     Dosage: 200 MG, ST, CYCLE 15 DAY 1
     Route: 041
     Dates: start: 20231102, end: 20231102
  16. PEMBROLIZUMAB [Suspect]
     Active Substance: PEMBROLIZUMAB
     Dosage: 200 MG, ST, CYCLE 16 DAY 1
     Route: 041
     Dates: start: 20231123, end: 20231123
  17. SODIUM CHLORIDE [Concomitant]
     Active Substance: SODIUM CHLORIDE
     Dosage: 100 MILLILITER
     Route: 041
     Dates: start: 20230106, end: 20230106
  18. SODIUM CHLORIDE [Concomitant]
     Active Substance: SODIUM CHLORIDE
     Dosage: 100 MILLILITER
     Route: 041
     Dates: start: 20230131, end: 20230131
  19. SODIUM CHLORIDE [Concomitant]
     Active Substance: SODIUM CHLORIDE
     Dosage: 100 MILLILITER
     Route: 041
     Dates: start: 20230221, end: 20230221
  20. SODIUM CHLORIDE [Concomitant]
     Active Substance: SODIUM CHLORIDE
     Dosage: 100 MILLILITER
     Route: 041
     Dates: start: 20230316, end: 20230316
  21. SODIUM CHLORIDE [Concomitant]
     Active Substance: SODIUM CHLORIDE
     Dosage: 100 MILLILITER
     Route: 041
     Dates: start: 20230407, end: 20230407
  22. SODIUM CHLORIDE [Concomitant]
     Active Substance: SODIUM CHLORIDE
     Dosage: 100 MILLILITER
     Route: 041
     Dates: start: 20230426, end: 20230426
  23. SODIUM CHLORIDE [Concomitant]
     Active Substance: SODIUM CHLORIDE
     Dosage: 100 MILLILITER
     Route: 041
     Dates: start: 20230518, end: 20230518
  24. SODIUM CHLORIDE [Concomitant]
     Active Substance: SODIUM CHLORIDE
     Dosage: 100 MILLILITER
     Route: 041
     Dates: start: 20230609, end: 20230609
  25. SODIUM CHLORIDE [Concomitant]
     Active Substance: SODIUM CHLORIDE
     Dosage: 100 MILLILITER
     Route: 041
     Dates: start: 20230630, end: 20230630
  26. SODIUM CHLORIDE [Concomitant]
     Active Substance: SODIUM CHLORIDE
     Dosage: 100 MILLILITER
     Route: 041
     Dates: start: 20230721, end: 20230721
  27. SODIUM CHLORIDE [Concomitant]
     Active Substance: SODIUM CHLORIDE
     Dosage: 100 MILLILITER
     Route: 041
     Dates: start: 20230811, end: 20230811
  28. SODIUM CHLORIDE [Concomitant]
     Active Substance: SODIUM CHLORIDE
     Dosage: 100 MILLILITER
     Route: 041
     Dates: start: 20230901, end: 20230901
  29. SODIUM CHLORIDE [Concomitant]
     Active Substance: SODIUM CHLORIDE
     Dosage: 100 MILLILITER
     Route: 041
     Dates: start: 20230922, end: 20230922
  30. SODIUM CHLORIDE [Concomitant]
     Active Substance: SODIUM CHLORIDE
     Dosage: 100 MILLILITER
     Route: 041
     Dates: start: 20231013, end: 20231013
  31. SODIUM CHLORIDE [Concomitant]
     Active Substance: SODIUM CHLORIDE
     Dosage: 100 MILLILITER
     Route: 041
     Dates: start: 20231102, end: 20231102
  32. SODIUM CHLORIDE [Concomitant]
     Active Substance: SODIUM CHLORIDE
     Dosage: 100 MILLILITER
     Route: 041
     Dates: start: 20231123, end: 20231123

REACTIONS (24)
  - Bronchiectasis [Unknown]
  - Arteriosclerosis coronary artery [Unknown]
  - Aortic arteriosclerosis [Unknown]
  - Immune-mediated lung disease [Recovering/Resolving]
  - Pulmonary mass [Unknown]
  - Emphysema [Unknown]
  - Pulmonary calcification [Unknown]
  - Mediastinal disorder [Unknown]
  - Pleural thickening [Unknown]
  - Pleural effusion [Unknown]
  - Hepatic calcification [Unknown]
  - Splenic calcification [Unknown]
  - Upper respiratory tract infection [Unknown]
  - Urinary incontinence [Unknown]
  - Anal incontinence [Unknown]
  - Cortisol decreased [Unknown]
  - Blood corticotrophin decreased [Unknown]
  - Inappropriate schedule of product administration [Unknown]
  - Inappropriate schedule of product administration [Unknown]
  - Inappropriate schedule of product administration [Unknown]
  - Inappropriate schedule of product administration [Unknown]
  - Inappropriate schedule of product administration [Unknown]
  - Inappropriate schedule of product administration [Unknown]
  - Inappropriate schedule of product administration [Unknown]

NARRATIVE: CASE EVENT DATE: 20230131
